FAERS Safety Report 8699017 (Version 2)
Quarter: 2013Q1

REPORT INFORMATION
  Report Type: Report from Study
  Country: JP (occurrence: JP)
  Receive Date: 20120802
  Receipt Date: 20130212
  Transmission Date: 20140127
  Serious: Yes (Other)
  Sender: FDA-Public Use
  Company Number: JP-009507513-1207JPN010967

PATIENT
  Age: 56 Year
  Sex: Female
  Weight: 51 kg

DRUGS (6)
  1. PEGINTRON [Suspect]
     Indication: CHRONIC HEPATITIS C
     Dosage: 1.5 MICROGRAM PER KILOGRAM, QW
     Route: 058
     Dates: start: 20120330, end: 20120413
  2. PEGINTRON [Suspect]
     Dosage: 1.2 MICROGRAM PER KILOGRAM, QW
     Route: 058
     Dates: start: 20120420, end: 20120601
  3. REBETOL [Suspect]
     Indication: CHRONIC HEPATITIS C
     Dosage: 600 MG, QD
     Route: 048
     Dates: start: 20120330, end: 20120509
  4. REBETOL [Suspect]
     Dosage: 400 MG, QD
     Route: 048
     Dates: start: 20120510, end: 20120518
  5. TELAVIC [Suspect]
     Indication: CHRONIC HEPATITIS C
     Dosage: 1500 MG, QD
     Route: 048
     Dates: start: 20120330, end: 20120604
  6. PRIMPERAN [Concomitant]
     Indication: PROPHYLAXIS
     Dosage: 5 MG/DAY, PRN
     Route: 048
     Dates: start: 20120331, end: 20120412

REACTIONS (5)
  - Retinopathy [Recovering/Resolving]
  - Vomiting [None]
  - Gastritis [None]
  - Rash [None]
  - Haemoglobin decreased [None]
